FAERS Safety Report 4530354-7 (Version None)
Quarter: 2004Q4

REPORT INFORMATION
  Report Type: 
  Country: None (occurrence: None)
  Receive Date: 20041216
  Receipt Date: 20041216
  Transmission Date: 20050328
  Serious: Yes (Hospitalization)
  Sender: FDA-Public Use
  Company Number: None

PATIENT
  Sex: Female
  Weight: 63.8211 kg

DRUGS (1)
  1. DOCETAXEL   100MG/M2 [Suspect]
     Indication: CERVIX CARCINOMA RECURRENT
     Dosage: 169 MG, Q21DAYS, IV
     Route: 042
     Dates: start: 20041206

REACTIONS (1)
  - FEBRILE NEUTROPENIA [None]
